FAERS Safety Report 9586469 (Version 1)
Quarter: 2013Q4

REPORT INFORMATION
  Report Type: Spontaneous
  Country: US (occurrence: US)
  Receive Date: 20131003
  Receipt Date: 20131003
  Transmission Date: 20140711
  Serious: Yes (Other)
  Sender: FDA-Public Use
  Company Number: US-JNJFOC-20130917590

PATIENT
  Age: 80 Year
  Sex: Female
  Weight: 63.5 kg

DRUGS (3)
  1. XARELTO [Suspect]
     Indication: DEEP VEIN THROMBOSIS
     Route: 048
     Dates: start: 20130119
  2. VERAPAMIL [Concomitant]
     Indication: HYPERTENSION
     Dosage: ONE AND HALF A DAY
     Route: 065
  3. PRAVASTATIN [Concomitant]
     Indication: BLOOD CHOLESTEROL INCREASED
     Dosage: ONE AND HALF A DAY
     Route: 048
     Dates: start: 20130909

REACTIONS (8)
  - Squamous cell carcinoma [Unknown]
  - Foot deformity [Not Recovered/Not Resolved]
  - Neuropathy peripheral [Unknown]
  - Contusion [Not Recovered/Not Resolved]
  - Pain [Unknown]
  - Local swelling [Not Recovered/Not Resolved]
  - Scar [Unknown]
  - Drug prescribing error [Unknown]
